FAERS Safety Report 16982902 (Version 3)
Quarter: 2019Q4

REPORT INFORMATION
  Report Type: Spontaneous
  Country: DE (occurrence: DE)
  Receive Date: 20191101
  Receipt Date: 20191115
  Transmission Date: 20200122
  Serious: Yes (Death, Life-Threatening, Hospitalization, Other)
  Sender: FDA-Public Use
  Company Number: DE-ASTRAZENECA-2019SF53812

PATIENT
  Sex: Male

DRUGS (2)
  1. DURVALUMAB. [Suspect]
     Active Substance: DURVALUMAB
     Indication: LUNG CARCINOMA CELL TYPE UNSPECIFIED STAGE III
     Route: 042
     Dates: start: 20190828
  2. DURVALUMAB. [Suspect]
     Active Substance: DURVALUMAB
     Indication: LUNG CARCINOMA CELL TYPE UNSPECIFIED STAGE III
     Route: 042
     Dates: start: 201908

REACTIONS (12)
  - Vascular device infection [Fatal]
  - Crohn^s disease [Unknown]
  - Asthenia [Unknown]
  - Lung disorder [Unknown]
  - Dyspnoea [Unknown]
  - Oxygen saturation decreased [Unknown]
  - Pneumonia bacterial [Fatal]
  - Drug intolerance [Fatal]
  - Thrombosis [Unknown]
  - Pulmonary embolism [Unknown]
  - Pneumonia [Fatal]
  - Erectile dysfunction [Unknown]
